FAERS Safety Report 13270190 (Version 1)
Quarter: 2017Q1

REPORT INFORMATION
  Report Type: Spontaneous
  Country: RO (occurrence: RO)
  Receive Date: 20170224
  Receipt Date: 20170224
  Transmission Date: 20170428
  Serious: Yes (Other)
  Sender: FDA-Public Use
  Company Number: RO-GLAXOSMITHKLINE-RO2017GSK024048

PATIENT
  Age: 35 Year
  Sex: Female

DRUGS (3)
  1. DUPHASTON [Suspect]
     Active Substance: DYDROGESTERONE
  2. RANITIDINE. [Suspect]
     Active Substance: RANITIDINE
  3. METOCLOPRAMIDE. [Suspect]
     Active Substance: METOCLOPRAMIDE

REACTIONS (3)
  - Abortion threatened [Unknown]
  - Exposure during pregnancy [Unknown]
  - Live birth [Unknown]
